FAERS Safety Report 17147109 (Version 4)
Quarter: 2020Q1

REPORT INFORMATION
  Report Type: Report from Study
  Country: IT (occurrence: IT)
  Receive Date: 20191212
  Receipt Date: 20200203
  Transmission Date: 20200409
  Serious: Yes (Hospitalization, Other)
  Sender: FDA-Public Use
  Company Number: IT-ACCORD-165284

PATIENT
  Age: 55 Year
  Sex: Female

DRUGS (4)
  1. MITOTANE [Suspect]
     Active Substance: MITOTANE
     Indication: ADRENAL GLAND CANCER
     Dosage: MAR-2017
     Route: 042
     Dates: start: 201701
  2. DOXORUBICIN [Suspect]
     Active Substance: DOXORUBICIN
     Indication: ADRENAL GLAND CANCER
     Dosage: EDP REGIMEN
     Dates: start: 201703
  3. CISPLATIN. [Suspect]
     Active Substance: CISPLATIN
     Indication: ADRENAL GLAND CANCER
     Dosage: EDP REGIMEN
     Route: 042
     Dates: start: 201703
  4. ETOPOSIDE. [Suspect]
     Active Substance: ETOPOSIDE
     Indication: ADRENAL GLAND CANCER
     Dosage: EDP REGIMEN
     Route: 042
     Dates: start: 201703

REACTIONS (4)
  - Off label use [Unknown]
  - Device related infection [Recovered/Resolved]
  - Infusion site infection [Recovered/Resolved]
  - Bacteraemia [Recovered/Resolved]

NARRATIVE: CASE EVENT DATE: 2017
